FAERS Safety Report 5081638-8 (Version None)
Quarter: 2006Q3

REPORT INFORMATION
  Report Type: 
  Country: None (occurrence: None)
  Receive Date: 20060811
  Receipt Date: 20060809
  Transmission Date: 20061208
  Serious: No
  Sender: FDA-Public Use
  Company Number: E2020-00336-SPO-ES

PATIENT
  Age: 77 Year
  Sex: Female
  Weight: 56 kg

DRUGS (2)
  1. ARICEPT [Suspect]
     Indication: DEMENTIA ALZHEIMER'S TYPE
     Dosage: 5 MG, 1 IN 1 D, ORAL; 10  MG, 1 IN 1 D, ORAL
     Route: 048
     Dates: start: 20060222, end: 20060620
  2. ARICEPT [Suspect]
     Indication: DEMENTIA ALZHEIMER'S TYPE
     Dosage: 5 MG, 1 IN 1 D, ORAL; 10  MG, 1 IN 1 D, ORAL
     Route: 048
     Dates: start: 20060621, end: 20060623

REACTIONS (3)
  - HYPERGLYCAEMIA [None]
  - MALAISE [None]
  - STUPOR [None]
